FAERS Safety Report 5828663-4 (Version None)
Quarter: 2008Q3

REPORT INFORMATION
  Report Type: 
  Country: None (occurrence: None)
  Receive Date: 20080731
  Receipt Date: 20080729
  Transmission Date: 20090109
  Serious: Yes (Life-Threatening)
  Sender: FDA-Public Use
  Company Number: JP-BRISTOL-MYERS SQUIBB COMPANY-14251912

PATIENT
  Age: 51 Year
  Sex: Male

DRUGS (10)
  1. BARACLUDE [Suspect]
     Indication: HEPATITIS B
     Route: 048
     Dates: start: 20080524, end: 20080613
  2. LASIX [Suspect]
     Route: 048
     Dates: start: 20080410, end: 20080613
  3. ALLOPURINOL [Suspect]
     Route: 048
     Dates: start: 20080523, end: 20080613
  4. FLUITRAN [Suspect]
     Route: 048
     Dates: start: 20080419, end: 20080613
  5. ALDACTONE [Concomitant]
     Route: 048
     Dates: start: 20080412
  6. PURSENNID [Concomitant]
     Route: 048
     Dates: start: 20080419
  7. DAI-KENCHU-TO [Concomitant]
     Route: 048
     Dates: start: 20080415
  8. PROMAC [Concomitant]
     Route: 048
     Dates: start: 20080412
  9. NEO-MINOPHAGEN C [Concomitant]
     Route: 042
     Dates: start: 20080514
  10. LIVACT [Concomitant]
     Route: 048
     Dates: start: 20080417

REACTIONS (2)
  - AGRANULOCYTOSIS [None]
  - PYREXIA [None]
